FAERS Safety Report 8947668 (Version 6)
Quarter: 2013Q2

REPORT INFORMATION
  Report Type: Spontaneous
  Country: US (occurrence: US)
  Receive Date: 20121204
  Receipt Date: 20130629
  Transmission Date: 20140414
  Serious: Yes (Hospitalization, Other)
  Sender: FDA-Public Use
  Company Number: US-009507513-1212USA000482

PATIENT
  Age: 56 Year
  Sex: Male

DRUGS (3)
  1. PEGINTRON [Suspect]
     Indication: HEPATITIS C
     Dosage: REDIPEN
     Route: 058
     Dates: start: 20121116, end: 20130531
  2. RIBAVIRIN [Suspect]
     Indication: HEPATITIS C
     Dosage: UNK
     Route: 048
     Dates: start: 20121116, end: 20130531
  3. VICTRELIS [Suspect]
     Indication: HEPATITIS C
     Dosage: UNK
     Route: 048
     Dates: start: 20121214, end: 20130531

REACTIONS (13)
  - Anaemia [Unknown]
  - Anaemia [Unknown]
  - Night sweats [Unknown]
  - Insomnia [Unknown]
  - Poor quality sleep [Unknown]
  - Pruritus generalised [Unknown]
  - Rash generalised [Unknown]
  - Nausea [Unknown]
  - Gastrointestinal disorder [Unknown]
  - Pruritus [Unknown]
  - Bone pain [Recovered/Resolved]
  - Hyperhidrosis [Recovering/Resolving]
  - Pruritus generalised [Recovered/Resolved]
